FAERS Safety Report 19763843 (Version 2)
Quarter: 2021Q3

REPORT INFORMATION
  Report Type: Report from Study
  Country: FR (occurrence: FR)
  Receive Date: 20210830
  Receipt Date: 20210916
  Transmission Date: 20211014
  Serious: Yes (Hospitalization, Other)
  Sender: FDA-Public Use
  Company Number: FR-TAKEDA-2020TUS057658

PATIENT
  Weight: 166 kg

DRUGS (11)
  1. LANADELUMAB [Suspect]
     Active Substance: LANADELUMAB
     Dosage: 300 MILLIGRAM, Q7WEEKS
     Route: 065
     Dates: start: 20200525
  2. LANADELUMAB [Suspect]
     Active Substance: LANADELUMAB
     Indication: PRODUCT USED FOR UNKNOWN INDICATION
     Dosage: 300 MILLIGRAM, Q2WEEKS
     Route: 065
     Dates: start: 20190322
  3. LANADELUMAB [Suspect]
     Active Substance: LANADELUMAB
     Dosage: 300 MILLIGRAM, Q6WEEKS
     Route: 065
     Dates: start: 20191022
  4. LANADELUMAB [Suspect]
     Active Substance: LANADELUMAB
     Dosage: 300 MILLIGRAM, Q7WEEKS
     Route: 065
     Dates: start: 20200121
  5. CHLORAMINOPHENE [Concomitant]
     Active Substance: CHLORAMBUCIL
     Dosage: UNK
  6. LANADELUMAB [Suspect]
     Active Substance: LANADELUMAB
     Dosage: 300 MILLIGRAM, Q7WEEKS
     Route: 065
     Dates: start: 20201209
  7. LANADELUMAB [Suspect]
     Active Substance: LANADELUMAB
     Dosage: UNK
     Route: 065
  8. LANADELUMAB [Suspect]
     Active Substance: LANADELUMAB
     Dosage: UNK
     Route: 065
  9. GAZYVARO [Concomitant]
     Active Substance: OBINUTUZUMAB
     Dosage: UNK
  10. LANADELUMAB [Suspect]
     Active Substance: LANADELUMAB
     Dosage: 300 MILLIGRAM, Q4WEEKS
     Route: 065
     Dates: start: 20190709
  11. LANADELUMAB [Suspect]
     Active Substance: LANADELUMAB
     Dosage: UNK
     Route: 065

REACTIONS (3)
  - Hospitalisation [Unknown]
  - Chronic lymphocytic leukaemia [Not Recovered/Not Resolved]
  - Off label use [Unknown]

NARRATIVE: CASE EVENT DATE: 20200128
